FAERS Safety Report 9269729 (Version 3)
Quarter: 2013Q2

REPORT INFORMATION
  Report Type: Report from Study
  Country: US (occurrence: US)
  Receive Date: 20130503
  Receipt Date: 20130619
  Transmission Date: 20140414
  Serious: Yes (Other)
  Sender: FDA-Public Use
  Company Number: US-TEVA-402584USA

PATIENT
  Age: 37 Year
  Sex: Female

DRUGS (5)
  1. CLARAVIS [Suspect]
     Dosage: 30 MILLIGRAM DAILY;
     Dates: start: 20130228, end: 20130428
  2. ORAL CONTRACEPTIVE NOS [Concomitant]
  3. DOXYCYCLINE [Concomitant]
     Indication: STAPHYLOCOCCAL INFECTION
  4. TERBINAFINE [Concomitant]
  5. LORATADINE [Concomitant]

REACTIONS (1)
  - Unintended pregnancy [Recovered/Resolved]
